FAERS Safety Report 22125696 (Version 2)
Quarter: 2023Q1

REPORT INFORMATION
  Report Type: Report from Study
  Country: US (occurrence: US)
  Receive Date: 20230322
  Receipt Date: 20230327
  Transmission Date: 20230417
  Serious: No
  Sender: FDA-Public Use
  Company Number: US-002147023-NVSC2023US065484

PATIENT
  Sex: Female

DRUGS (1)
  1. COSENTYX [Suspect]
     Active Substance: SECUKINUMAB
     Indication: Ankylosing spondylitis
     Dosage: 150 MG
     Route: 058
     Dates: start: 202212

REACTIONS (6)
  - Musculoskeletal stiffness [Unknown]
  - Pain [Unknown]
  - Mobility decreased [Unknown]
  - Platelet count increased [Unknown]
  - Weight decreased [Unknown]
  - Feeding disorder [Unknown]
